FAERS Safety Report 26174625 (Version 1)
Quarter: 2025Q4

REPORT INFORMATION
  Report Type: Spontaneous
  Country: US (occurrence: None)
  Receive Date: 20251218
  Receipt Date: 20251218
  Transmission Date: 20260118
  Serious: Yes (Other)
  Sender: FDA-CTU
  Company Number: None

PATIENT
  Sex: Female

DRUGS (11)
  1. BOTOX [Suspect]
     Active Substance: ONABOTULINUMTOXINA
     Indication: Torticollis
  2. AMLODIPINE TAB5MG [Concomitant]
  3. BUSPIRONE [Concomitant]
     Active Substance: BUSPIRONE HYDROCHLORIDE
  4. D3-1000 CAP 1000UNIT [Concomitant]
  5. DULOXETINE CAP 20MG DR [Concomitant]
  6. ELIQUIS [Concomitant]
     Active Substance: APIXABAN
  7. FUROSEMIDE [Concomitant]
     Active Substance: FUROSEMIDE
  8. LOSARTAN POT TAB S0MG [Concomitant]
  9. LUNESTA TAB 2MG [Concomitant]
  10. OMEPRAZOLE [Concomitant]
     Active Substance: OMEPRAZOLE
  11. POT CHLORIDE TAB 10MEQ ER [Concomitant]

REACTIONS (1)
  - Neck surgery [None]
